FAERS Safety Report 9929466 (Version 5)
Quarter: 2014Q3

REPORT INFORMATION
  Report Type: Spontaneous
  Country: CA (occurrence: CA)
  Receive Date: 20140227
  Receipt Date: 20140716
  Transmission Date: 20150326
  Serious: Yes (Hospitalization, Other)
  Sender: FDA-Public Use
  Company Number: CA-GLAXOSMITHKLINE-A1062203A

PATIENT
  Sex: Female
  Weight: 65.9 kg

DRUGS (3)
  1. SPIRIVA [Suspect]
     Active Substance: TIOTROPIUM BROMIDE MONOHYDRATE
     Indication: PRODUCT USED FOR UNKNOWN INDICATION
     Route: 065
  2. ADVAIR DISKUS [Suspect]
     Active Substance: FLUTICASONE PROPIONATE\SALMETEROL XINAFOATE
     Indication: CHRONIC OBSTRUCTIVE PULMONARY DISEASE
     Dosage: 1PUFF TWICE PER DAY
     Route: 055
     Dates: start: 201109, end: 20140208
  3. COUMADIN [Suspect]
     Active Substance: WARFARIN SODIUM
     Indication: PRODUCT USED FOR UNKNOWN INDICATION
     Route: 065
     Dates: start: 2011

REACTIONS (7)
  - Quality of life decreased [Unknown]
  - Epistaxis [Recovered/Resolved]
  - Feeling cold [Unknown]
  - Haemorrhage [Recovered/Resolved]
  - Pulmonary embolism [Not Recovered/Not Resolved]
  - Nasal cavity packing [Unknown]
  - Cough [Unknown]

NARRATIVE: CASE EVENT DATE: 2011
